FAERS Safety Report 8616981-6 (Version None)
Quarter: 2012Q3

REPORT INFORMATION
  Report Type: 
  Country: None (occurrence: None)
  Receive Date: 20120823
  Receipt Date: 20120813
  Transmission Date: 20120928
  Serious: No
  Sender: FDA-Public Use
  Company Number: US-009507513-1208USA006554

PATIENT

DRUGS (1)
  1. NUVARING [Suspect]
     Dosage: UNK, QM
     Route: 067

REACTIONS (2)
  - INCORRECT DRUG ADMINISTRATION DURATION [None]
  - INAPPROPRIATE SCHEDULE OF DRUG ADMINISTRATION [None]
